FAERS Safety Report 8902677 (Version 2)
Quarter: 2012Q4

REPORT INFORMATION
  Report Type: 
  Country: AU (occurrence: AU)
  Receive Date: 20121112
  Receipt Date: 20121203
  Transmission Date: 20130627
  Serious: Yes (Other)
  Sender: FDA-Public Use
  Company Number: AU-ASTRAZENECA-2012SE64820

PATIENT
  Age: 68 Year
  Sex: Female

DRUGS (18)
  1. SEROQUEL [Suspect]
     Indication: ANXIOLYTIC THERAPY
     Route: 048
     Dates: start: 20120315, end: 20120903
  2. SEROQUEL [Suspect]
     Indication: DEPRESSION
     Route: 048
     Dates: start: 20120315, end: 20120903
  3. SEROQUEL [Suspect]
     Indication: ANXIOLYTIC THERAPY
     Route: 048
     Dates: start: 20120904, end: 20121008
  4. SEROQUEL [Suspect]
     Indication: DEPRESSION
     Route: 048
     Dates: start: 20120904, end: 20121008
  5. SEROQUEL [Suspect]
     Indication: ANXIOLYTIC THERAPY
     Route: 048
     Dates: start: 20121009
  6. SEROQUEL [Suspect]
     Indication: DEPRESSION
     Route: 048
     Dates: start: 20121009
  7. SEROQUEL [Suspect]
     Indication: ANXIOLYTIC THERAPY
     Route: 048
  8. SEROQUEL [Suspect]
     Indication: DEPRESSION
     Route: 048
  9. AVANZA [Suspect]
     Indication: DEPRESSION
     Dates: start: 20120323
  10. AVANZA [Suspect]
     Indication: ANXIOLYTIC THERAPY
     Dates: start: 20120323
  11. NEXIUM [Concomitant]
     Indication: ABDOMINAL DISCOMFORT
  12. SOMAC [Concomitant]
     Indication: ABDOMINAL DISCOMFORT
  13. RIVOTRIL [Concomitant]
     Indication: ANXIOLYTIC THERAPY
  14. RIVOTRIL [Concomitant]
     Indication: DEPRESSION
  15. DOTHEP [Concomitant]
     Indication: ANXIOLYTIC THERAPY
  16. DOTHEP [Concomitant]
     Indication: DEPRESSION
  17. SEROQUEL [Suspect]
     Indication: ANXIOLYTIC THERAPY
     Route: 048
     Dates: start: 201201, end: 20120315
  18. SEROQUEL [Suspect]
     Indication: DEPRESSION
     Route: 048
     Dates: start: 201201, end: 20120315

REACTIONS (27)
  - Haematochezia [Unknown]
  - Gait disturbance [Not Recovered/Not Resolved]
  - Personality change [Not Recovered/Not Resolved]
  - Abdominal discomfort [Not Recovered/Not Resolved]
  - Head discomfort [Unknown]
  - Memory impairment [Unknown]
  - Speech disorder [Unknown]
  - Anxiety [Not Recovered/Not Resolved]
  - Chills [Unknown]
  - Musculoskeletal stiffness [Unknown]
  - Pharyngeal oedema [Not Recovered/Not Resolved]
  - Sensation of foreign body [Recovered/Resolved]
  - Adverse event [Unknown]
  - Insomnia [Not Recovered/Not Resolved]
  - Tremor [Unknown]
  - Somnolence [Not Recovered/Not Resolved]
  - Vision blurred [Not Recovered/Not Resolved]
  - Weight increased [Unknown]
  - Dizziness [Unknown]
  - Heart rate increased [Unknown]
  - Dry mouth [Unknown]
  - Oedema peripheral [Not Recovered/Not Resolved]
  - Constipation [Unknown]
  - Increased appetite [Unknown]
  - Intentional drug misuse [Unknown]
  - Drug ineffective [Not Recovered/Not Resolved]
  - Depression [Unknown]
